FAERS Safety Report 8097050-3 (Version None)
Quarter: 2012Q1

REPORT INFORMATION
  Report Type: 
  Country: None (occurrence: None)
  Receive Date: 20120131
  Receipt Date: 20120120
  Transmission Date: 20120608
  Serious: Yes (Hospitalization)
  Sender: FDA-Public Use
  Company Number: US-BAYER-2011-052332

PATIENT
  Age: 37 Year
  Sex: Female
  Weight: 68.027 kg

DRUGS (8)
  1. METHYLPREDNISOLONE [Concomitant]
     Dosage: 4 MG, UNK
  2. YAZ [Suspect]
     Indication: ORAL CONTRACEPTION
     Dosage: UNK
     Dates: start: 20081001, end: 20090709
  3. VITAMIN B COMPLEX CAP [Concomitant]
     Dosage: UNK UNK, QD
     Dates: end: 20090709
  4. RANITIDINE [Concomitant]
     Dosage: 150 MG, UNK
  5. HYDROCODONE BITARTRATE AND ACETAMINOPHEN [Concomitant]
     Dosage: UNK UNK, PRN
     Route: 048
  6. IBUPROFEN [Concomitant]
  7. L-LYSINE [Concomitant]
     Dosage: UNK UNK, QD
     Dates: end: 20090709
  8. VERAPAMIL [Concomitant]
     Dosage: 240 MG, UNK

REACTIONS (5)
  - DEEP VEIN THROMBOSIS [None]
  - EMOTIONAL DISTRESS [None]
  - PAIN [None]
  - FATIGUE [None]
  - PULMONARY EMBOLISM [None]
